FAERS Safety Report 19683344 (Version 1)
Quarter: 2021Q3

REPORT INFORMATION
  Report Type: Spontaneous
  Country: US (occurrence: US)
  Receive Date: 20210811
  Receipt Date: 20210811
  Transmission Date: 20211014
  Serious: No
  Sender: FDA-Public Use
  Company Number: US-ELI_LILLY_AND_COMPANY-US202107006402

PATIENT
  Sex: Female

DRUGS (3)
  1. OZEMPIC [Concomitant]
     Active Substance: SEMAGLUTIDE
     Indication: BLOOD GLUCOSE INCREASED
  2. BASAGLAR [Suspect]
     Active Substance: INSULIN GLARGINE
     Indication: TYPE 2 DIABETES MELLITUS
     Dosage: UNK UNK, UNKNOWN
     Route: 058
     Dates: start: 2020
  3. GLYBURIDE. [Concomitant]
     Active Substance: GLYBURIDE
     Indication: BLOOD GLUCOSE INCREASED

REACTIONS (1)
  - Blood glucose increased [Unknown]
